FAERS Safety Report 14389914 (Version 1)
Quarter: 2018Q1

REPORT INFORMATION
  Report Type: Report from Study
  Country: None (occurrence: CA)
  Receive Date: 20180115
  Receipt Date: 20180115
  Transmission Date: 20180509
  Serious: Yes (Other)
  Sender: FDA-Public Use
  Company Number: CA-ABBVIE-17P-028-1981964-00

PATIENT
  Sex: Female

DRUGS (1)
  1. HOLKIRA PAK [Suspect]
     Active Substance: DASABUVIR\OMBITASVIR\PARITAPREVIR\RITONAVIR
     Indication: EXPOSURE VIA BODY FLUID
     Route: 050

REACTIONS (3)
  - Exposure during pregnancy [Unknown]
  - Paternal drugs affecting foetus [Unknown]
  - Abortion induced [Unknown]
